FAERS Safety Report 9525169 (Version 1)
Quarter: 2013Q1

REPORT INFORMATION
  Report Type: Spontaneous
  Country: US (occurrence: None)
  Receive Date: 20130314
  Receipt Date: 20130314
  Transmission Date: 20140127
  Serious: No
  Sender: FDA-Public Use
  Company Number: 1301USA011755

PATIENT
  Age: 55 Year
  Sex: Male

DRUGS (3)
  1. PEGINTRON (PEGINTERFERON ALFA-2B) POWDER FOR INJECTION [Suspect]
     Indication: HEPATITIS C
     Dosage: 120 MCG PER 0.5 ML, QW, SUBCUTANEOUS
     Route: 058
     Dates: start: 20120409
  2. VICTRELIS (BOCEPREVIR) CAPSULE [Suspect]
     Dosage: UNK
  3. RIBAVIRIN [Suspect]

REACTIONS (3)
  - White blood cell count decreased [None]
  - Neutrophil count decreased [None]
  - Drug dose omission [None]
